FAERS Safety Report 16780833 (Version 1)
Quarter: 2019Q3

REPORT INFORMATION
  Report Type: Spontaneous
  Country: CN (occurrence: CN)
  Receive Date: 20190906
  Receipt Date: 20190906
  Transmission Date: 20191005
  Serious: Yes (Other)
  Sender: FDA-Public Use
  Company Number: CN-PFIZER INC-2019378368

PATIENT
  Age: 88 Year
  Sex: Male
  Weight: 60 kg

DRUGS (4)
  1. MUCOSOLVAN [Suspect]
     Active Substance: AMBROXOL HYDROCHLORIDE
     Dosage: 30 MG, 2X/DAY
     Route: 041
     Dates: start: 20190702, end: 20190723
  2. MUCOSOLVAN [Suspect]
     Active Substance: AMBROXOL HYDROCHLORIDE
     Dosage: UNK
  3. NUTRISON [NUTRIENTS NOS] [Suspect]
     Active Substance: AMINO ACIDS\CARBOHYDRATES\MINERALS\SOYBEAN OIL\VITAMINS
     Indication: NUTRITIONAL SUPPLEMENTATION
     Dosage: 20 G, 3X/DAY
     Route: 045
     Dates: start: 20190627, end: 20190723
  4. LIPITOR [Suspect]
     Active Substance: ATORVASTATIN CALCIUM
     Indication: HYPERTENSION
     Dosage: 20 MG, 1X/DAY
     Route: 048
     Dates: start: 20190626, end: 20190723

REACTIONS (6)
  - Cerebral haemorrhage [Unknown]
  - Speech disorder [Unknown]
  - Lung infection [Unknown]
  - Faeces discoloured [Unknown]
  - Muscular weakness [Unknown]
  - Diarrhoea [Unknown]

NARRATIVE: CASE EVENT DATE: 20190719
